FAERS Safety Report 8363368-X (Version None)
Quarter: 2012Q2

REPORT INFORMATION
  Report Type: 
  Country: None (occurrence: None)
  Receive Date: 20120516
  Receipt Date: 20111216
  Transmission Date: 20120825
  Serious: No
  Sender: FDA-Public Use
  Company Number: US-ALEXION-A201101913

PATIENT
  Sex: Female

DRUGS (9)
  1. ASPIRIN [Concomitant]
     Dosage: UNK, QD
  2. NEXIUM [Concomitant]
     Dosage: 20 MG, UNK
  3. SOLIRIS [Suspect]
     Indication: HAEMOLYTIC URAEMIC SYNDROME
     Dosage: UNK
     Route: 042
     Dates: start: 20101112
  4. XANAX [Concomitant]
     Dosage: 0.5 MG, UNK
  5. OXYCODONE HCL [Concomitant]
     Dosage: 20 MG, Q 6 HOURS PRN
  6. SPIRIVA [Concomitant]
  7. CARVEDILOL [Concomitant]
     Dosage: UNK, BID
  8. SYNTHROID [Concomitant]
     Dosage: 100 UG, QD
  9. NORVASC [Concomitant]
     Dosage: 5 MG, BID

REACTIONS (1)
  - BREAST DISCOMFORT [None]
